FAERS Safety Report 5291756-7 (Version None)
Quarter: 2007Q2

REPORT INFORMATION
  Report Type: 
  Country: None (occurrence: None)
  Receive Date: 20070410
  Receipt Date: 20070328
  Transmission Date: 20071010
  Serious: Yes (Other)
  Sender: FDA-Public Use
  Company Number: PHBS2007JP05844

PATIENT
  Age: 7 Year

DRUGS (2)
  1. ZADITEN [Suspect]
     Route: 048
  2. PERIACTIN [Concomitant]

REACTIONS (3)
  - EPISTAXIS [None]
  - PETECHIAE [None]
  - WHITE BLOOD CELL COUNT DECREASED [None]
